FAERS Safety Report 8203380-4 (Version None)
Quarter: 2012Q1

REPORT INFORMATION
  Report Type: 
  Country: None (occurrence: None)
  Receive Date: 20120312
  Receipt Date: 20120301
  Transmission Date: 20120608
  Serious: Yes (Hospitalization)
  Sender: FDA-Public Use
  Company Number: BR-ASTRAZENECA-2012SE15283

PATIENT
  Age: 83 Year
  Sex: Male

DRUGS (4)
  1. FERROUS SULFATE TAB [Concomitant]
     Indication: PROSTATE CANCER
     Route: 048
  2. ATACAND HCT [Suspect]
     Indication: HYPERTENSION
     Dosage: 16/12.5 MG DAILY
     Route: 048
     Dates: end: 20110101
  3. METFORMIN HCL [Concomitant]
     Indication: DIABETES MELLITUS
  4. LEXAPRO [Concomitant]
     Indication: DEPRESSION

REACTIONS (3)
  - CHOLELITHIASIS [None]
  - WEIGHT DECREASED [None]
  - MUSCLE SPASMS [None]
